FAERS Safety Report 5956197-5 (Version None)
Quarter: 2008Q4

REPORT INFORMATION
  Report Type: 
  Country: None (occurrence: None)
  Receive Date: 20081118
  Receipt Date: 20081113
  Transmission Date: 20090506
  Serious: Yes (Death)
  Sender: FDA-Public Use
  Company Number: JP-ELI_LILLY_AND_COMPANY-JP200811002814

PATIENT
  Sex: Male
  Weight: 78 kg

DRUGS (8)
  1. SOMATROPIN [Suspect]
     Indication: GROWTH HORMONE DEFICIENCY
     Dosage: 0.24 MG, DAILY (1/D)
     Route: 058
     Dates: start: 20060810
  2. BLOPRESS [Concomitant]
     Indication: HYPERTENSION
     Dosage: 8 MG, DAILY (1/D)
     Route: 048
     Dates: start: 20060411
  3. DESMOPRESSIN ACETATE [Concomitant]
     Indication: DIABETES INSIPIDUS
     Dosage: 20 UG, DAILY (1/D)
     Route: 045
     Dates: start: 20060411
  4. LEVOTHYROXINE SODIUM [Concomitant]
     Indication: SECONDARY HYPOTHYROIDISM
     Dosage: 175 UG, DAILY (1/D)
     Route: 048
     Dates: start: 20060411, end: 20070110
  5. LEVOTHYROXINE SODIUM [Concomitant]
     Dosage: 100 UG, DAILY (1/D)
     Route: 048
     Dates: start: 20070111
  6. CALBLOCK [Concomitant]
     Indication: HYPERTENSION
     Dosage: 16 MG, DAILY (1/D)
     Route: 048
     Dates: start: 20071105
  7. CORTRIL [Concomitant]
     Indication: ADRENAL INSUFFICIENCY
     Dosage: 15 MG, DAILY (1/D)
     Route: 048
     Dates: start: 20080811
  8. ZYLORIC [Concomitant]
     Indication: HYPERURICAEMIA
     Dosage: 100 MG, DAILY (1/D)
     Route: 048
     Dates: start: 20080303

REACTIONS (1)
  - DEATH [None]
